FAERS Safety Report 18663832 (Version 1)
Quarter: 2020Q4

REPORT INFORMATION
  Report Type: Spontaneous
  Country: GB (occurrence: GB)
  Receive Date: 20201224
  Receipt Date: 20201224
  Transmission Date: 20210114
  Serious: Yes (Congenital Anomaly)
  Sender: FDA-Public Use
  Company Number: GB-AUROBINDO-AUR-APL-2020-062565

PATIENT
  Sex: Female

DRUGS (1)
  1. ONDANSETRON FILM-COATED TABLET [Suspect]
     Active Substance: ONDANSETRON
     Indication: HYPEREMESIS GRAVIDARUM
     Dosage: 1 DOSAGE FORM, ONCE A DAY, I CAN^T REMEMBER EXACTLY BUT AT LEAST ONE TABLET A DAY.
     Route: 048
     Dates: start: 201004

REACTIONS (2)
  - Maternal exposure during pregnancy [Unknown]
  - Constipation [Recovered/Resolved]

NARRATIVE: CASE EVENT DATE: 201004
